FAERS Safety Report 6124653-5 (Version None)
Quarter: 2009Q1

REPORT INFORMATION
  Report Type: 
  Country: None (occurrence: None)
  Receive Date: 20090319
  Receipt Date: 20090311
  Transmission Date: 20090719
  Serious: Yes (Life-Threatening)
  Sender: FDA-Public Use
  Company Number: B0565597A

PATIENT
  Age: 44 Year
  Sex: Female
  Weight: 60 kg

DRUGS (2)
  1. LAPATINIB [Suspect]
     Indication: BREAST CANCER
     Dosage: 1250MG PER DAY
     Route: 065
     Dates: start: 20090226, end: 20090303
  2. CAPECITABINE [Concomitant]
     Indication: BREAST CANCER
     Dosage: 2500MG PER DAY
     Route: 065
     Dates: start: 20090227, end: 20090303

REACTIONS (1)
  - TACHYCARDIA [None]
